FAERS Safety Report 25925585 (Version 1)
Quarter: 2025Q4

REPORT INFORMATION
  Report Type: Spontaneous
  Country: US (occurrence: None)
  Receive Date: 20251014
  Receipt Date: 20251014
  Transmission Date: 20260118
  Serious: Yes (Hospitalization)
  Sender: FDA-CTU
  Company Number: None

PATIENT
  Sex: Male

DRUGS (4)
  1. LENALIDOMIDE [Suspect]
     Active Substance: LENALIDOMIDE
     Indication: Plasma cell myeloma
     Dosage: TAKE 1 CAPSULE (25 MG) BY MOUTH DAILY ON DAYS 1-14 EVERY 21 DAY CYCLE?
     Route: 048
     Dates: start: 20250923
  2. ACYCLOVIR TAB 800MG [Concomitant]
  3. DARZALEX SOL 100/5ML [Concomitant]
  4. ELIQUIS [Concomitant]
     Active Substance: APIXABAN

REACTIONS (7)
  - Pyrexia [None]
  - Tremor [None]
  - Hyperhidrosis [None]
  - Inappropriate schedule of product administration [None]
  - Dizziness [None]
  - Haematochezia [None]
  - Sleep apnoea syndrome [None]
